FAERS Safety Report 8523156-8 (Version None)
Quarter: 2012Q3

REPORT INFORMATION
  Report Type: 
  Country: None (occurrence: None)
  Receive Date: 20120720
  Receipt Date: 20120706
  Transmission Date: 20120928
  Serious: Yes (Hospitalization)
  Sender: FDA-Public Use
  Company Number: GB-RANBAXY-2012R1-57817

PATIENT
  Age: 82 Year
  Sex: Female

DRUGS (11)
  1. HYPROMELLOSE [Concomitant]
     Indication: PRODUCT USED FOR UNKNOWN INDICATION
     Dosage: LONG TERM USE
     Route: 065
  2. NAPROXEN [Suspect]
     Indication: ARTHRITIS
     Dosage: LONG TERM (500 MG, BID)
     Route: 048
     Dates: end: 20120617
  3. ACETAMINOPHEN AND CODEINE PHOSPHATE [Concomitant]
     Indication: PRODUCT USED FOR UNKNOWN INDICATION
     Dosage: 8/500 1 OR 2, FOUR TIMES A DAY AS REQUIRED (1 DF, QID)
     Route: 065
  4. ASPIRIN [Suspect]
     Indication: PRODUCT USED FOR UNKNOWN INDICATION
     Dosage: EVERY MORNING (OM). LONG TERM USE. (75 MG, QD)
     Route: 048
  5. CITALOPRAM HYDROBROMIDE [Concomitant]
     Indication: PRODUCT USED FOR UNKNOWN INDICATION
     Dosage: EVERY MORNING (10 MG, QD)
     Route: 065
  6. DOUBLEBASE [Concomitant]
     Indication: PRODUCT USED FOR UNKNOWN INDICATION
     Dosage: LONG TERM USE
     Route: 065
  7. FOLIC ACID [Concomitant]
     Indication: PRODUCT USED FOR UNKNOWN INDICATION
     Dosage: EVERY MORNING (5 MG, QD)
     Route: 065
     Dates: start: 20120519
  8. LAXIDO [Concomitant]
     Indication: PRODUCT USED FOR UNKNOWN INDICATION
     Dosage: AS REQUIRED (1 DF, QID)
     Route: 065
  9. MOVELAT [Suspect]
     Indication: ARTHRITIS
     Dosage: THREE TIMES A DAY AS REQUIRED (1 DF, TID)
     Route: 061
     Dates: start: 20120601, end: 20120620
  10. ALENDRONATE SODIUM [Concomitant]
     Indication: PRODUCT USED FOR UNKNOWN INDICATION
     Dosage: 70 MG, 1/WEEK
     Route: 065
  11. OMEPRAZOLE [Concomitant]
     Indication: PRODUCT USED FOR UNKNOWN INDICATION
     Dosage: EVERY MORNING. LONG TERM USE (20 MG, QD)
     Route: 065

REACTIONS (7)
  - GASTROINTESTINAL HAEMORRHAGE [None]
  - HAEMOGLOBIN DECREASED [None]
  - CARDIAC FAILURE [None]
  - MYOCARDIAL INFARCTION [None]
  - BRAIN NATRIURETIC PEPTIDE ABNORMAL [None]
  - TROPONIN I INCREASED [None]
  - ABDOMINAL PAIN [None]
